FAERS Safety Report 17524089 (Version 1)
Quarter: 2020Q1

REPORT INFORMATION
  Report Type: Spontaneous
  Country: US (occurrence: US)
  Receive Date: 20200302
  Receipt Date: 20200302
  Transmission Date: 20200409
  Serious: Yes (Hospitalization)
  Sender: FDA-Public Use
  Company Number: None

PATIENT
  Age: 61 Year
  Sex: Female

DRUGS (28)
  1. ANORO ELLIP AER [Concomitant]
  2. NEURONIN [Concomitant]
  3. PREDNISONE. [Concomitant]
     Active Substance: PREDNISONE
  4. PRALUENT [Suspect]
     Active Substance: ALIROCUMAB
     Indication: HYPERLIPIDAEMIA
     Dosage: ?          OTHER DOSE:1 PEN;?
     Route: 058
     Dates: start: 20170528
  5. CLOPIDOGREL [Concomitant]
     Active Substance: CLOPIDOGREL BISULFATE
  6. DILAUDID [Concomitant]
     Active Substance: HYDROMORPHONE HYDROCHLORIDE
  7. LEVEALBUTEROL AER [Concomitant]
  8. MUCINEX [Concomitant]
     Active Substance: GUAIFENESIN
  9. BENZONATATE. [Concomitant]
     Active Substance: BENZONATATE
  10. CARVEDILOL. [Concomitant]
     Active Substance: CARVEDILOL
  11. CIPROFLOXACN [Concomitant]
     Active Substance: CIPROFLOXACIN
  12. DOXYCYCL HYC [Concomitant]
  13. VERAPAMI; [Concomitant]
  14. DIAZEPAM. [Concomitant]
     Active Substance: DIAZEPAM
  15. TIZANIDINE. [Concomitant]
     Active Substance: TIZANIDINE
  16. TOPIRAMATE. [Concomitant]
     Active Substance: TOPIRAMATE
  17. TRIAMCINOLON OIN [Concomitant]
  18. ALPRAZOLAM. [Concomitant]
     Active Substance: ALPRAZOLAM
  19. CEFUROXIME. [Concomitant]
     Active Substance: CEFUROXIME
  20. DIGOXIN. [Concomitant]
     Active Substance: DIGOXIN
  21. PANTOPRAZOLE [Concomitant]
     Active Substance: PANTOPRAZOLE
  22. WAL-TUSSIN [Concomitant]
     Active Substance: DEXTROMETHORPHAN HYDROBROMIDE
  23. ERTHYROMYCIN OIN [Concomitant]
  24. FLUTICASONE. [Concomitant]
     Active Substance: FLUTICASONE
  25. MONTELUKAST [Concomitant]
     Active Substance: MONTELUKAST SODIUM
  26. NYSTATIN. [Concomitant]
     Active Substance: NYSTATIN
  27. PROAIR HFA [Concomitant]
     Active Substance: ALBUTEROL SULFATE
  28. SYSTANE GEL DRO [Concomitant]

REACTIONS (2)
  - Therapy cessation [None]
  - Pneumonia [None]

NARRATIVE: CASE EVENT DATE: 20200211
